FAERS Safety Report 22188232 (Version 1)
Quarter: 2023Q2

REPORT INFORMATION
  Report Type: Spontaneous
  Country: NL (occurrence: NL)
  Receive Date: 20230408
  Receipt Date: 20230408
  Transmission Date: 20230721
  Serious: Yes (Hospitalization, Other)
  Sender: FDA-Public Use
  Company Number: None

PATIENT
  Sex: Female
  Weight: 62.4 kg

DRUGS (2)
  1. CAPECITABINE [Suspect]
     Active Substance: CAPECITABINE
     Indication: Colon cancer metastatic
     Dosage: 3300 MILLIGRAM DAILY; 2 TIMES A DAY 1650 MG, 1000 MG/M2,  BRAND NAME NOT SPECIFIED
     Route: 065
     Dates: start: 20230110
  2. AVASTIN [Concomitant]
     Active Substance: BEVACIZUMAB
     Indication: Product used for unknown indication
     Dosage: 25 MG/ML (MILLIGRAMS PER MILLILITER), AVASTIN  INFVLST CONC 25MG/ML VIAL 4ML

REACTIONS (2)
  - Gastrointestinal infection [Not Recovered/Not Resolved]
  - Pulmonary embolism [Not Recovered/Not Resolved]
